FAERS Safety Report 5578973-3 (Version None)
Quarter: 2008Q1

REPORT INFORMATION
  Report Type: 
  Country: None (occurrence: None)
  Receive Date: 20080102
  Receipt Date: 20071218
  Transmission Date: 20080703
  Serious: Yes (Hospitalization)
  Sender: FDA-Public Use
  Company Number: ES-ELI_LILLY_AND_COMPANY-ES200712003819

PATIENT
  Age: 69 Year
  Sex: Male

DRUGS (5)
  1. FORTEO [Suspect]
     Indication: OSTEOPOROSIS
     Dosage: 20 UG, UNKNOWN
     Route: 058
     Dates: start: 20070626
  2. ZARATOR [Concomitant]
     Indication: BLOOD CHOLESTEROL
     Dosage: UNK, UNKNOWN
  3. PLUSVENT [Concomitant]
     Indication: PULMONARY FIBROSIS
     Dosage: UNK, UNKNOWN
  4. COZAAR [Concomitant]
     Indication: HYPERTENSION
     Dosage: UNK, UNKNOWN
  5. SPIRIVA [Concomitant]
     Indication: PULMONARY FIBROSIS
     Dosage: UNK, UNKNOWN

REACTIONS (5)
  - BLOOD PRESSURE DECREASED [None]
  - BRONCHITIS [None]
  - COUGH [None]
  - OXYGEN SATURATION [None]
  - PYREXIA [None]
